FAERS Safety Report 5552374-6 (Version None)
Quarter: 2007Q4

REPORT INFORMATION
  Report Type: 
  Country: None (occurrence: None)
  Receive Date: 20071212
  Receipt Date: 20071207
  Transmission Date: 20080405
  Serious: Yes (Hospitalization)
  Sender: FDA-Public Use
  Company Number: GB-MERCK-0712GBR00037

PATIENT
  Age: 13 Year
  Sex: Female

DRUGS (5)
  1. HYDROCORTONE [Suspect]
     Route: 048
  2. DICLOFENAC [Suspect]
     Indication: ANALGESIA
     Route: 054
  3. CEFOTAXIME SODIUM [Suspect]
     Route: 065
  4. MESALAMINE [Suspect]
     Route: 065
  5. METRONIDAZOLE [Suspect]
     Route: 065

REACTIONS (1)
  - RENAL FAILURE ACUTE [None]
